FAERS Safety Report 7165672-X (Version None)
Quarter: 2010Q4

REPORT INFORMATION
  Report Type: 
  Country: None (occurrence: None)
  Receive Date: 20101215
  Receipt Date: 20100104
  Transmission Date: 20110411
  Serious: No
  Sender: FDA-Public Use
  Company Number: US-AMGEN-KDL383490

PATIENT

DRUGS (17)
  1. ENBREL [Suspect]
     Indication: PRODUCT USED FOR UNKNOWN INDICATION
     Dosage: 50 MG, QWK
     Route: 058
  2. DULOXETINE HYDROCHLORIDE [Concomitant]
     Dosage: 20 MG, UNK
  3. SITAGLIPTIN [Concomitant]
     Dosage: 25 MG, UNK
  4. PROMETHAZINE HYDROCHLORIDE [Concomitant]
     Dosage: 25 MG, UNK
  5. METHOTREXATE [Concomitant]
     Dosage: 2.5 MG, UNK
  6. PREDNISONE [Concomitant]
     Dosage: 2.5 MG, UNK
  7. DICYCLOVERINE HYDROCHLORIDE [Concomitant]
     Dosage: 20 MG, UNK
  8. TRAMADOL HCL [Concomitant]
     Dosage: 50 MG, UNK
  9. GEMFIBROZIL [Concomitant]
     Dosage: 600 MG, UNK
  10. ACTONEL [Concomitant]
     Dosage: 5 MG, UNK
  11. TOCOPHEROL CONCENTRATE CAP [Concomitant]
     Dosage: 400 IU/KG, UNK
  12. PROPRANOLOL [Concomitant]
     Dosage: 10 MG, UNK
  13. CALCIUM [Concomitant]
     Dosage: 600 MG, UNK
  14. MULTI-VITAMINS [Concomitant]
     Dosage: UNK UNK, UNK
  15. ASCORBIC ACID [Concomitant]
     Dosage: 500 MG, UNK
  16. ERGOCALCIFEROL [Concomitant]
     Dosage: 1000 IU/KG, UNK
  17. ASPIRIN [Concomitant]
     Dosage: 5 MG, UNK

REACTIONS (1)
  - INFLUENZA [None]
